FAERS Safety Report 11634006 (Version 1)
Quarter: 2015Q4

REPORT INFORMATION
  Report Type: Report from Study
  Country: AU (occurrence: AU)
  Receive Date: 20151015
  Receipt Date: 20151015
  Transmission Date: 20160304
  Serious: Yes (Hospitalization, Other)
  Sender: FDA-Public Use
  Company Number: PHHY2015AU110976

PATIENT
  Age: 34 Year
  Sex: Male
  Weight: 125 kg

DRUGS (3)
  1. SODIUM VALPROATE [Concomitant]
     Active Substance: VALPROATE SODIUM
     Indication: PRODUCT USED FOR UNKNOWN INDICATION
     Dosage: UNK
     Route: 065
     Dates: start: 20120917
  2. CLOZARIL [Suspect]
     Active Substance: CLOZAPINE
     Indication: SCHIZOPHRENIA
     Dosage: 450 MG, QHS (AT NIGHT)
     Route: 048
     Dates: start: 20070130
  3. ESCITALOPRAM [Concomitant]
     Active Substance: ESCITALOPRAM OXALATE
     Indication: PRODUCT USED FOR UNKNOWN INDICATION
     Dosage: 10 MG, TID
     Route: 065
     Dates: start: 20120917

REACTIONS (8)
  - Pyelonephritis [Recovered/Resolved with Sequelae]
  - Pyrexia [Unknown]
  - Haemoglobin decreased [Unknown]
  - Escherichia urinary tract infection [Unknown]
  - Micturition urgency [Unknown]
  - Dysuria [Unknown]
  - Flank pain [Unknown]
  - Type 2 diabetes mellitus [Recovered/Resolved]

NARRATIVE: CASE EVENT DATE: 20150905
